FAERS Safety Report 17588879 (Version 6)
Quarter: 2022Q3

REPORT INFORMATION
  Report Type: Other
  Country: US (occurrence: None)
  Receive Date: 20200327
  Receipt Date: 20220929
  Transmission Date: 20221026
  Serious: Yes (Other)
  Sender: FDA-Public Use
  Company Number: US-ROCHE-2570826

PATIENT
  Age: 47 Year
  Sex: Female
  Weight: 89.892 kg

DRUGS (7)
  1. OCREVUS [Suspect]
     Active Substance: OCRELIZUMAB
     Indication: Multiple sclerosis
     Dosage: 2 HALF DOSES TWO WEEKS APART, ONGOING: YES
     Route: 042
     Dates: start: 201901
  2. OCREVUS [Suspect]
     Active Substance: OCRELIZUMAB
     Indication: Neuralgia
     Dosage: LATEST DOSE OF OCRELIZUMAB: 18/JAN/2022
     Route: 042
  3. OCREVUS [Suspect]
     Active Substance: OCRELIZUMAB
     Indication: Neuritis
  4. ADDERALL [Concomitant]
     Active Substance: AMPHETAMINE ASPARTATE\AMPHETAMINE SULFATE\DEXTROAMPHETAMINE SACCHARATE\DEXTROAMPHETAMINE SULFATE
     Indication: Fatigue
  5. ZANIFLEX [Concomitant]
     Indication: Muscle spasms
  6. MAXALT [Concomitant]
     Active Substance: RIZATRIPTAN BENZOATE
     Indication: Migraine
  7. FIORICET [Concomitant]
     Active Substance: ACETAMINOPHEN\BUTALBITAL\CAFFEINE
     Indication: Migraine

REACTIONS (9)
  - Urinary tract infection [Not Recovered/Not Resolved]
  - Haemorrhage [Recovered/Resolved]
  - Cystitis noninfective [Unknown]
  - Diverticulum [Unknown]
  - Fall [Unknown]
  - Breast cyst [Unknown]
  - Urinary incontinence [Not Recovered/Not Resolved]
  - Blood urine present [Unknown]
  - Gastric disorder [Unknown]

NARRATIVE: CASE EVENT DATE: 20190101
